FAERS Safety Report 7307660-6 (Version None)
Quarter: 2011Q1

REPORT INFORMATION
  Report Type: 
  Country: None (occurrence: None)
  Receive Date: 20110223
  Receipt Date: 20110211
  Transmission Date: 20110831
  Serious: Yes (Other)
  Sender: FDA-Public Use
  Company Number: US-SANOFI-AVENTIS-2011SA009642

PATIENT
  Age: 75 Year
  Sex: Male

DRUGS (16)
  1. JANUVIA [Concomitant]
  2. MULTAQ [Suspect]
     Route: 048
     Dates: start: 20100327, end: 20110101
  3. RANOLAZINE [Concomitant]
  4. COUMADIN [Concomitant]
     Dates: end: 20101214
  5. ALISKIREN [Concomitant]
  6. PRAVASTATIN [Concomitant]
  7. FINASTERIDE [Concomitant]
  8. AMIODARONE HCL [Concomitant]
     Dates: start: 20080101
  9. COREG [Concomitant]
  10. AMARYL [Concomitant]
  11. DEMADEX [Concomitant]
  12. DABIGATRAN [Concomitant]
  13. SINGULAIR [Concomitant]
  14. TAMSULOSIN [Concomitant]
  15. ZEMPLAR [Concomitant]
     Indication: HYPERPARATHYROIDISM
  16. ADVAIR HFA [Concomitant]

REACTIONS (4)
  - ATRIAL FIBRILLATION [None]
  - EJECTION FRACTION DECREASED [None]
  - CARDIAC FAILURE [None]
  - DYSPNOEA [None]
